FAERS Safety Report 24983575 (Version 2)
Quarter: 2025Q4

REPORT INFORMATION
  Report Type: Spontaneous
  Country: JP (occurrence: JP)
  Receive Date: 20250219
  Receipt Date: 20251106
  Transmission Date: 20260117
  Serious: Yes (Hospitalization, Other)
  Sender: ASTELLAS
  Company Number: JP-ASTELLAS-2025-AER-008800

PATIENT
  Age: 77 Year
  Sex: Female

DRUGS (1)
  1. TACROLIMUS [Suspect]
     Active Substance: TACROLIMUS
     Indication: Rheumatoid arthritis
     Route: 048

REACTIONS (4)
  - Interstitial lung disease [Unknown]
  - Chronic respiratory failure [Unknown]
  - Fracture [Unknown]
  - Off label use [Unknown]
